FAERS Safety Report 10206571 (Version 8)
Quarter: 2015Q4

REPORT INFORMATION
  Report Type: Spontaneous
  Country: US (occurrence: US)
  Receive Date: 20140530
  Receipt Date: 20151009
  Transmission Date: 20160304
  Serious: Yes (Hospitalization, Other)
  Sender: FDA-Public Use
  Company Number: US-GLAXOSMITHKLINE-A1041376A

PATIENT
  Sex: Female

DRUGS (9)
  1. FLOLAN [Suspect]
     Active Substance: EPOPROSTENOL SODIUM
     Dosage: UNK
     Dates: start: 20070208
  2. LETAIRIS [Concomitant]
     Active Substance: AMBRISENTAN
  3. COUMADIN [Concomitant]
     Active Substance: WARFARIN SODIUM
  4. FLOLAN [Suspect]
     Active Substance: EPOPROSTENOL SODIUM
     Dosage: 48 NG/KG/MINUTE, 60,000NG/ML CONTINUOUS
     Route: 042
  5. FLOLAN [Suspect]
     Active Substance: EPOPROSTENOL SODIUM
     Dosage: 48 NG/KG/MINUTE, 60,000NG/ML CONTINUOUS
     Route: 042
  6. ADCIRCA [Concomitant]
     Active Substance: TADALAFIL
  7. FLOLAN [Suspect]
     Active Substance: EPOPROSTENOL SODIUM
     Indication: PULMONARY ARTERIAL HYPERTENSION
     Dosage: DOSE: 45 NG/KG/MIN; CONCENTRATION: 60,000 NG/ML; PUMP RATE: NOT REPORTED; VIAL STRENGTH: 1.5 MG.
     Route: 042
     Dates: start: 20070125
  8. FLOLAN [Suspect]
     Active Substance: EPOPROSTENOL SODIUM
     Dosage: 47 NG/KG/MIN, 60,000 NG/ML, 82 ML/DAY, 1.5 MG
  9. FLOLAN [Suspect]
     Active Substance: EPOPROSTENOL SODIUM
     Dosage: 48 NG/KG/MIN CONTINUOUSLY; CONCENTRATION: 60,000 NG/ML; PUMP RATE: 84 ML/DAY; VIAL STRENGTH: 1.5 MG
     Route: 042
     Dates: start: 20070208

REACTIONS (8)
  - Central venous catheterisation [Unknown]
  - Flushing [Recovered/Resolved]
  - Hospitalisation [Unknown]
  - Device infusion issue [Unknown]
  - Skin infection [Recovering/Resolving]
  - Dizziness [Recovered/Resolved]
  - Sinusitis [Unknown]
  - Product quality issue [Unknown]
